FAERS Safety Report 20999609 (Version 1)
Quarter: 2022Q2

REPORT INFORMATION
  Report Type: Spontaneous
  Country: CN (occurrence: CN)
  Receive Date: 20220623
  Receipt Date: 20220623
  Transmission Date: 20220721
  Serious: Yes (Disabling)
  Sender: FDA-Public Use
  Company Number: CN-PFIZER INC-PV202200006792

PATIENT
  Age: 50 Year
  Sex: Male
  Weight: 65 kg

DRUGS (16)
  1. CELEBREX [Suspect]
     Active Substance: CELECOXIB
     Indication: Brain contusion
     Dosage: 0.2 G, 1X/DAY
     Route: 048
     Dates: start: 20220428, end: 20220502
  2. CELEBREX [Suspect]
     Active Substance: CELECOXIB
     Indication: Extradural haematoma
  3. CELEBREX [Suspect]
     Active Substance: CELECOXIB
     Indication: Analgesic therapy
  4. CELEBREX [Suspect]
     Active Substance: CELECOXIB
     Indication: Inflammation
  5. LIPITOR [Suspect]
     Active Substance: ATORVASTATIN CALCIUM
     Indication: Brain contusion
     Dosage: 20 MG, 1X/DAY
     Route: 048
     Dates: start: 20220428, end: 20220511
  6. LIPITOR [Suspect]
     Active Substance: ATORVASTATIN CALCIUM
     Indication: Extradural haematoma
  7. LIPITOR [Suspect]
     Active Substance: ATORVASTATIN CALCIUM
     Indication: Lipids increased
  8. OLANZAPINE [Suspect]
     Active Substance: OLANZAPINE
     Indication: Brain contusion
     Dosage: 10 MG, 1X/DAY
     Route: 048
     Dates: start: 20220429, end: 20220501
  9. OLANZAPINE [Suspect]
     Active Substance: OLANZAPINE
     Indication: Extradural haematoma
  10. OLANZAPINE [Suspect]
     Active Substance: OLANZAPINE
     Indication: Mental disorder
  11. CEFAZOLIN SODIUM [Suspect]
     Active Substance: CEFAZOLIN SODIUM
     Indication: Brain contusion
     Dosage: 2 G, 2X/DAY
     Route: 041
     Dates: start: 20220427, end: 20220501
  12. CEFAZOLIN SODIUM [Suspect]
     Active Substance: CEFAZOLIN SODIUM
     Indication: Extradural haematoma
  13. CEFAZOLIN SODIUM [Suspect]
     Active Substance: CEFAZOLIN SODIUM
     Indication: Anti-infective therapy
  14. CIMETIDINE [Suspect]
     Active Substance: CIMETIDINE
     Indication: Brain contusion
     Dosage: 0.6 G, 1X/DAY
     Route: 041
     Dates: start: 20220427, end: 20220502
  15. CIMETIDINE [Suspect]
     Active Substance: CIMETIDINE
     Indication: Extradural haematoma
  16. CIMETIDINE [Suspect]
     Active Substance: CIMETIDINE
     Indication: Gastrointestinal disorder

REACTIONS (1)
  - Hepatic function abnormal [Recovering/Resolving]

NARRATIVE: CASE EVENT DATE: 20220502
